FAERS Safety Report 7393121-5 (Version None)
Quarter: 2011Q2

REPORT INFORMATION
  Report Type: 
  Country: None (occurrence: None)
  Receive Date: 20110404
  Receipt Date: 20110325
  Transmission Date: 20111010
  Serious: Yes (Other)
  Sender: FDA-Public Use
  Company Number: GB-MERCK-1009GBR00099

PATIENT
  Age: 82 Year
  Sex: Male
  Weight: 76 kg

DRUGS (6)
  1. TRUSOPT [Suspect]
     Indication: GLAUCOMA
     Route: 047
     Dates: start: 20100801
  2. LATANOPROST [Concomitant]
     Indication: GLAUCOMA
     Route: 065
     Dates: start: 20030901
  3. LACIDIPINE [Concomitant]
     Route: 065
     Dates: start: 20030101, end: 20100101
  4. POTASSIUM CHLORIDE [Concomitant]
     Indication: ROUTINE HEALTH MAINTENANCE
     Route: 065
     Dates: start: 20030101
  5. LEVOTHYROXINE SODIUM [Concomitant]
     Indication: THYROID DISORDER
     Route: 065
     Dates: start: 20040101
  6. LACIDIPINE [Concomitant]
     Indication: HYPERTENSION
     Route: 065
     Dates: start: 20100801

REACTIONS (5)
  - DIZZINESS [None]
  - ASTHENIA [None]
  - EYE PAIN [None]
  - DYSPNOEA [None]
  - VISUAL IMPAIRMENT [None]
